FAERS Safety Report 25638107 (Version 1)
Quarter: 2025Q3

REPORT INFORMATION
  Report Type: Spontaneous
  Country: US (occurrence: US)
  Receive Date: 20250804
  Receipt Date: 20250804
  Transmission Date: 20251021
  Serious: Yes (Other)
  Sender: MYLAN
  Company Number: US-MYLANLABS-2025M1064665

PATIENT
  Age: 65 Year
  Sex: Female

DRUGS (20)
  1. EFFEXOR [Suspect]
     Active Substance: VENLAFAXINE HYDROCHLORIDE
     Indication: Product used for unknown indication
  2. EFFEXOR [Suspect]
     Active Substance: VENLAFAXINE HYDROCHLORIDE
     Route: 065
  3. EFFEXOR [Suspect]
     Active Substance: VENLAFAXINE HYDROCHLORIDE
     Route: 065
  4. EFFEXOR [Suspect]
     Active Substance: VENLAFAXINE HYDROCHLORIDE
  5. KEVEYIS [Suspect]
     Active Substance: DICHLORPHENAMIDE
     Indication: Paralysis
  6. KEVEYIS [Suspect]
     Active Substance: DICHLORPHENAMIDE
  7. KEVEYIS [Suspect]
     Active Substance: DICHLORPHENAMIDE
     Route: 048
  8. KEVEYIS [Suspect]
     Active Substance: DICHLORPHENAMIDE
     Route: 048
  9. KEVEYIS [Suspect]
     Active Substance: DICHLORPHENAMIDE
     Dosage: 75 MILLIGRAM, BID (1.5 TABLET, 2X/DAY)
     Dates: start: 20231117
  10. KEVEYIS [Suspect]
     Active Substance: DICHLORPHENAMIDE
     Dosage: 75 MILLIGRAM, BID (1.5 TABLET, 2X/DAY)
     Dates: start: 20231117
  11. KEVEYIS [Suspect]
     Active Substance: DICHLORPHENAMIDE
     Dosage: 75 MILLIGRAM, BID (1.5 TABLET, 2X/DAY)
     Route: 048
     Dates: start: 20231117
  12. KEVEYIS [Suspect]
     Active Substance: DICHLORPHENAMIDE
     Dosage: 75 MILLIGRAM, BID (1.5 TABLET, 2X/DAY)
     Route: 048
     Dates: start: 20231117
  13. SPIRONOLACTONE [Suspect]
     Active Substance: SPIRONOLACTONE
     Indication: Product used for unknown indication
  14. SPIRONOLACTONE [Suspect]
     Active Substance: SPIRONOLACTONE
     Route: 065
  15. SPIRONOLACTONE [Suspect]
     Active Substance: SPIRONOLACTONE
     Route: 065
  16. SPIRONOLACTONE [Suspect]
     Active Substance: SPIRONOLACTONE
  17. POTASSIUM [Concomitant]
     Active Substance: POTASSIUM
  18. POTASSIUM [Concomitant]
     Active Substance: POTASSIUM
     Route: 065
  19. POTASSIUM [Concomitant]
     Active Substance: POTASSIUM
     Route: 065
  20. POTASSIUM [Concomitant]
     Active Substance: POTASSIUM

REACTIONS (22)
  - Syncope [Unknown]
  - Paralysis [Unknown]
  - Stress [Unknown]
  - Gait disturbance [Unknown]
  - Hypopnoea [Unknown]
  - Post concussion syndrome [Unknown]
  - Panic attack [Unknown]
  - Mental disorder [Recovering/Resolving]
  - Frequent bowel movements [Unknown]
  - Feeling abnormal [Not Recovered/Not Resolved]
  - Malaise [Recovering/Resolving]
  - Unevaluable event [Unknown]
  - Abdominal pain [Recovering/Resolving]
  - Hot flush [Unknown]
  - Abdominal discomfort [Recovering/Resolving]
  - Nausea [Unknown]
  - Presyncope [Unknown]
  - Decreased appetite [Unknown]
  - Blood pressure increased [Unknown]
  - Diarrhoea [Recovering/Resolving]
  - Hyperhidrosis [Unknown]
  - Blood pressure decreased [Unknown]

NARRATIVE: CASE EVENT DATE: 20250630
